FAERS Safety Report 7700062-X (Version None)
Quarter: 2011Q3

REPORT INFORMATION
  Report Type: 
  Country: None (occurrence: None)
  Receive Date: 20110822
  Receipt Date: 20110815
  Transmission Date: 20111222
  Serious: Yes (Hospitalization)
  Sender: FDA-Public Use
  Company Number: US-ABBOTT-11P-163-0846138-00

PATIENT
  Sex: Female
  Weight: 81.72 kg

DRUGS (3)
  1. HUMIRA [Suspect]
     Indication: RHEUMATOID ARTHRITIS
     Dates: start: 20060101, end: 20110501
  2. METHOTREXATE [Concomitant]
     Indication: RHEUMATOID ARTHRITIS
  3. NABUMATOME [Concomitant]
     Indication: RHEUMATOID ARTHRITIS

REACTIONS (6)
  - RENAL FAILURE [None]
  - PAIN [None]
  - DEHYDRATION [None]
  - MALAISE [None]
  - MUSCULOSKELETAL STIFFNESS [None]
  - HAEMOGLOBIN ABNORMAL [None]
